FAERS Safety Report 12455861 (Version 6)
Quarter: 2016Q4

REPORT INFORMATION
  Report Type: Report from Study
  Country: BR (occurrence: BR)
  Receive Date: 20160610
  Receipt Date: 20161206
  Transmission Date: 20170207
  Serious: Yes (Life-Threatening, Hospitalization, Other)
  Sender: FDA-Public Use
  Company Number: PHHY2016BR077684

PATIENT
  Age: 67 Year
  Sex: Male
  Weight: 66 kg

DRUGS (7)
  1. GLIBENCLAMIDE [Suspect]
     Active Substance: GLYBURIDE
     Dosage: 0.5 DF, UNK
     Route: 065
  2. EXJADE [Suspect]
     Active Substance: DEFERASIROX
     Indication: MYELODYSPLASTIC SYNDROME
     Dosage: 4 DF, QD
     Route: 048
     Dates: start: 2014
  3. GLIBENCLAMIDE [Suspect]
     Active Substance: GLYBURIDE
     Indication: DIABETES MELLITUS
     Dosage: 1 DF, UNK
     Route: 065
  4. HYDREA [Suspect]
     Active Substance: HYDROXYUREA
     Indication: MYELODYSPLASTIC SYNDROME
     Dosage: 1 DF, QD
     Route: 065
     Dates: start: 2012, end: 20161130
  5. HYDREA [Suspect]
     Active Substance: HYDROXYUREA
     Indication: LEUKAEMIA
  6. EXJADE [Suspect]
     Active Substance: DEFERASIROX
     Indication: SERUM FERRITIN INCREASED
     Dosage: 3 DF, QD
     Route: 048
     Dates: start: 201405, end: 20161129
  7. EXJADE [Suspect]
     Active Substance: DEFERASIROX
     Dosage: 1 DF, QD
     Route: 048
     Dates: start: 20161130

REACTIONS (54)
  - Haemoglobin decreased [Recovered/Resolved]
  - Renal impairment [Unknown]
  - Ocular hyperaemia [Recovered/Resolved]
  - Screaming [Unknown]
  - Myalgia [Recovering/Resolving]
  - Hyperaesthesia [Unknown]
  - Amnesia [Unknown]
  - Onychomadesis [Recovering/Resolving]
  - Abdominal pain [Unknown]
  - Skin discolouration [Unknown]
  - Erythema [Recovered/Resolved]
  - Urinary tract infection [Recovered/Resolved]
  - Hypoglycaemia [Recovering/Resolving]
  - Immunodeficiency [Recovered/Resolved]
  - Gout [Unknown]
  - Tooth loss [Recovering/Resolving]
  - Asthenia [Unknown]
  - Skin wound [Unknown]
  - Pain [Unknown]
  - Influenza [Unknown]
  - Productive cough [Unknown]
  - Pain in extremity [Recovering/Resolving]
  - Skin exfoliation [Recovering/Resolving]
  - Apparent death [Unknown]
  - Wound complication [Unknown]
  - Inflammation [Unknown]
  - Rash macular [Unknown]
  - Neck pain [Unknown]
  - Hypokinesia [Unknown]
  - Drug prescribing error [Unknown]
  - Gastrointestinal infection [Recovered/Resolved]
  - Weight decreased [Recovered/Resolved]
  - Otorrhoea [Recovering/Resolving]
  - Dermatitis diaper [Unknown]
  - Decreased immune responsiveness [Unknown]
  - Hypoglycaemic coma [Recovering/Resolving]
  - Wound [Recovered/Resolved]
  - Skin exfoliation [Recovered/Resolved]
  - Blister [Unknown]
  - Eye inflammation [Recovered/Resolved]
  - Body height decreased [Unknown]
  - Memory impairment [Recovering/Resolving]
  - Malaise [Unknown]
  - Purulent discharge [Recovering/Resolving]
  - Fungal infection [Recovering/Resolving]
  - Blood glucose fluctuation [Recovering/Resolving]
  - Vomiting [Recovered/Resolved]
  - Platelet count decreased [Unknown]
  - Diarrhoea [Recovered/Resolved]
  - Finger deformity [Unknown]
  - Inflammation of wound [Unknown]
  - Renal disorder [Unknown]
  - Musculoskeletal pain [Unknown]
  - Gastrointestinal pain [Recovering/Resolving]

NARRATIVE: CASE EVENT DATE: 2014
